FAERS Safety Report 17936524 (Version 1)
Quarter: 2020Q2

REPORT INFORMATION
  Report Type: Spontaneous
  Country: US (occurrence: US)
  Receive Date: 20200624
  Receipt Date: 20200624
  Transmission Date: 20200714
  Serious: Yes (Hospitalization)
  Sender: FDA-Public Use
  Company Number: US-POUND INTERNATIONAL CORPORATION-2086611

PATIENT
  Sex: Female

DRUGS (1)
  1. MALE GENITAL DESENSITIZER STUD 100 [Suspect]
     Active Substance: LIDOCAINE
     Indication: PREMATURE EJACULATION

REACTIONS (6)
  - Vulvovaginal pain [Unknown]
  - Abdominal pain upper [Unknown]
  - Vulvovaginal discomfort [Unknown]
  - Abdominal pain [Unknown]
  - Gastrointestinal pain [Unknown]
  - Vulvovaginal inflammation [Unknown]
